FAERS Safety Report 18564869 (Version 1)
Quarter: 2020Q4

REPORT INFORMATION
  Report Type: Spontaneous
  Country: US (occurrence: US)
  Receive Date: 20201005
  Receipt Date: 20201005
  Transmission Date: 20210114
  Serious: No
  Sender: FDA-Public Use
  Company Number: None

PATIENT
  Age: 3 Decade
  Sex: Female

DRUGS (1)
  1. AMOXICILLIN-CLAVULANATE [Suspect]
     Active Substance: AMOXICILLIN\CLAVULANIC ACID
     Indication: COVID-19
     Dates: start: 2020

REACTIONS (5)
  - Caesarean section [None]
  - Foetal heart rate increased [None]
  - Pyrexia [None]
  - Intentional product use issue [None]
  - Maternal exposure timing unspecified [None]
